FAERS Safety Report 9558901 (Version 6)
Quarter: 2014Q3

REPORT INFORMATION
  Report Type: Report from Study
  Country: CA (occurrence: CA)
  Receive Date: 20130927
  Receipt Date: 20140930
  Transmission Date: 20150326
  Serious: Yes (Other)
  Sender: FDA-Public Use
  Company Number: CA-ROCHE-1000494

PATIENT
  Sex: Female
  Weight: 108 kg

DRUGS (10)
  1. ACTEMRA [Suspect]
     Active Substance: TOCILIZUMAB
     Indication: RHEUMATOID ARTHRITIS
     Route: 042
     Dates: start: 20110421, end: 20110714
  2. TYLENOL WITH CODEINE [Concomitant]
     Active Substance: ACETAMINOPHEN\CODEINE PHOSPHATE
  3. ACTEMRA [Suspect]
     Active Substance: TOCILIZUMAB
     Route: 042
     Dates: start: 20110714, end: 20110909
  4. PLAQUENIL [Concomitant]
     Active Substance: HYDROXYCHLOROQUINE SULFATE
  5. WARFARIN [Concomitant]
     Active Substance: WARFARIN
  6. VENLAFAXINE [Concomitant]
     Active Substance: VENLAFAXINE HYDROCHLORIDE
     Indication: DEPRESSION
  7. RITUXAN [Suspect]
     Active Substance: RITUXIMAB
     Indication: RHEUMATOID ARTHRITIS
     Dosage: UNKNOWN DOSE AND FREQUENCY
     Route: 042
     Dates: start: 20100317, end: 20100908
  8. ARAVA [Concomitant]
     Active Substance: LEFLUNOMIDE
  9. ELTROXIN [Concomitant]
     Active Substance: LEVOTHYROXINE
  10. MELOXICAM. [Concomitant]
     Active Substance: MELOXICAM

REACTIONS (2)
  - White blood cell count decreased [Unknown]
  - Knee arthroplasty [Unknown]
